FAERS Safety Report 8509035-0 (Version None)
Quarter: 2012Q3

REPORT INFORMATION
  Report Type: 
  Country: None (occurrence: None)
  Receive Date: 20120703
  Receipt Date: 20120628
  Transmission Date: 20120928
  Serious: Yes (Hospitalization)
  Sender: FDA-Public Use
  Company Number: 2012SP036741

PATIENT
  Age: 55 Year
  Sex: Male

DRUGS (12)
  1. DEXAMETHASONE [Suspect]
     Indication: MULTIPLE MYELOMA
     Dosage: 160 MG; ;PO
     Route: 048
     Dates: start: 20100927, end: 20101017
  2. DEXAMETHASONE [Suspect]
     Indication: MULTIPLE MYELOMA
     Dosage: 160 MG; ;PO
     Route: 048
     Dates: start: 20101018, end: 20101109
  3. DOXORUBICIN HCL [Suspect]
     Indication: MULTIPLE MYELOMA
     Dosage: 64 MG; IV
     Dates: start: 20100927, end: 20101017
  4. DOXORUBICIN HCL [Suspect]
     Indication: MULTIPLE MYELOMA
     Dosage: 64 MG; IV
     Dates: start: 20101010, end: 20101109
  5. AMOXICILLIN [Concomitant]
  6. GABAPENTIN [Concomitant]
  7. FUROSEMIDE [Concomitant]
  8. ACETAMINOPHEN [Concomitant]
  9. VELCADE [Suspect]
     Indication: MULTIPLE MYELOMA
     Dosage: 2.4 MG/M2; ;IV
     Route: 042
     Dates: start: 20100927
  10. VELCADE [Suspect]
     Indication: MULTIPLE MYELOMA
     Dosage: 2.4 MG/M2; ;IV
     Route: 042
     Dates: start: 20101018, end: 20101109
  11. ENOXAPARIN SODIUM [Concomitant]
  12. FUROSEMIDE [Concomitant]

REACTIONS (3)
  - DIARRHOEA [None]
  - NEOPLASM PROGRESSION [None]
  - MULTIPLE MYELOMA [None]
